FAERS Safety Report 6218055-0 (Version None)
Quarter: 2009Q2

REPORT INFORMATION
  Report Type: 
  Country: None (occurrence: None)
  Receive Date: 20090602
  Receipt Date: 20090313
  Transmission Date: 20091009
  Serious: Yes (Other)
  Sender: FDA-Public Use
  Company Number: 2009FG0060

PATIENT
  Sex: Male

DRUGS (2)
  1. FENOGLIDE [Suspect]
     Dosage: 120 MG, DAILY
  2. UNKNOWN STATIN [Concomitant]

REACTIONS (1)
  - DRUG INEFFECTIVE [None]
